FAERS Safety Report 24078591 (Version 1)
Quarter: 2024Q3

REPORT INFORMATION
  Report Type: Spontaneous
  Country: GB (occurrence: GB)
  Receive Date: 20240711
  Receipt Date: 20240711
  Transmission Date: 20241017
  Serious: Yes (Hospitalization, Other)
  Sender: SANDOZ
  Company Number: None

PATIENT
  Age: 6 Year
  Sex: Female

DRUGS (3)
  1. OMEPRAZOLE [Suspect]
     Active Substance: OMEPRAZOLE
     Indication: Gastrointestinal disorder prophylaxis
     Dosage: UNK
     Route: 065
  2. HUMAN IMMUNOGLOBULIN G [Concomitant]
     Active Substance: HUMAN IMMUNOGLOBULIN G
     Indication: Acute disseminated encephalomyelitis
     Dosage: UNK
     Route: 040
  3. METHYLPREDNISOLONE [Concomitant]
     Active Substance: METHYLPREDNISOLONE
     Indication: Acute disseminated encephalomyelitis
     Dosage: UNK(AGGRESSIVELY IMMUNOMODULATED)
     Route: 040

REACTIONS (5)
  - Substance-induced psychotic disorder [Recovered/Resolved]
  - Agitation [Recovered/Resolved]
  - Negativism [Recovered/Resolved]
  - Paranoia [Recovered/Resolved]
  - Hallucinations, mixed [Recovered/Resolved]
